FAERS Safety Report 8860026 (Version 2)
Quarter: 2012Q4

REPORT INFORMATION
  Report Type: 
  Country: US (occurrence: US)
  Receive Date: 20121025
  Receipt Date: 20121231
  Transmission Date: 20130627
  Serious: Yes (Hospitalization)
  Sender: FDA-Public Use
  Company Number: US-BIOGENIDEC-2012BI045803

PATIENT
  Age: 57 Year
  Sex: Female

DRUGS (1)
  1. AVONEX [Suspect]
     Indication: MULTIPLE SCLEROSIS
     Route: 030
     Dates: start: 20110824

REACTIONS (4)
  - Abdominal pain [Recovered/Resolved]
  - Sepsis [Recovered/Resolved]
  - Gastrointestinal disorder [Recovered/Resolved]
  - Memory impairment [Recovered/Resolved]
